FAERS Safety Report 7562840-X (Version None)
Quarter: 2011Q2

REPORT INFORMATION
  Report Type: 
  Country: None (occurrence: None)
  Receive Date: 20110622
  Receipt Date: 20110616
  Transmission Date: 20111010
  Serious: Yes (Congenital Anomaly)
  Sender: FDA-Public Use
  Company Number: FR-JNJFOC-20081103837

PATIENT
  Sex: Female
  Weight: 4.07 kg

DRUGS (2)
  1. PURINETHOL [Concomitant]
     Indication: DRUG EXPOSURE DURING PREGNANCY
     Dates: start: 20060601, end: 20070921
  2. REMICADE [Suspect]
     Indication: DRUG EXPOSURE BEFORE PREGNANCY
     Route: 050
     Dates: start: 20070205

REACTIONS (1)
  - X-LINKED CHROMOSOMAL DISORDER [None]
